FAERS Safety Report 5429368-4 (Version None)
Quarter: 2007Q3

REPORT INFORMATION
  Report Type: 
  Country: None (occurrence: None)
  Receive Date: 20070829
  Receipt Date: 20070823
  Transmission Date: 20080115
  Serious: Yes (Death, Congenital Anomaly)
  Sender: FDA-Public Use
  Company Number: JP-AVENTIS-200612620JP

PATIENT
  Age: 0 Day
  Sex: Female

DRUGS (4)
  1. LANTUS [Suspect]
     Indication: TYPE 1 DIABETES MELLITUS
     Dosage: DOSE: 10 UNITS
     Route: 064
     Dates: start: 20040101, end: 20040723
  2. PENFILL R [Concomitant]
     Indication: TYPE 1 DIABETES MELLITUS
     Dosage: DOSE: 8+4+4 UNITS/DAY
     Route: 064
     Dates: start: 20040201
  3. NOVORAPID [Concomitant]
     Indication: TYPE 1 DIABETES MELLITUS
     Dosage: DOSE: 8+4+4 UNITS/DAY
     Route: 064
     Dates: start: 20031201
  4. NOVORAPID [Concomitant]
     Dosage: DOSE: 10+8+10 UNITS/DAY
     Route: 064
     Dates: start: 20040401, end: 20040723

REACTIONS (5)
  - APGAR SCORE LOW [None]
  - CAESAREAN SECTION [None]
  - CARDIAC FAILURE [None]
  - DRUG EXPOSURE DURING PREGNANCY [None]
  - NEOPLASM MALIGNANT [None]
